FAERS Safety Report 24707879 (Version 1)
Quarter: 2024Q4

REPORT INFORMATION
  Report Type: Spontaneous
  Country: CN (occurrence: CN)
  Receive Date: 20241206
  Receipt Date: 20241206
  Transmission Date: 20250114
  Serious: Yes (Hospitalization, Other)
  Sender: JOHNSON AND JOHNSON
  Company Number: CN-JNJFOC-20241168547

PATIENT
  Age: 68 Year
  Sex: Female
  Weight: 70 kg

DRUGS (3)
  1. RISPERDAL [Suspect]
     Active Substance: RISPERIDONE
     Indication: Depression
     Route: 048
     Dates: start: 20241021, end: 20241024
  2. TRIHEXYPHENIDYL HYDROCHLORIDE [Suspect]
     Active Substance: TRIHEXYPHENIDYL HYDROCHLORIDE
     Indication: Depression
     Route: 048
     Dates: start: 20241021, end: 20241024
  3. IRBESARTAN [Concomitant]
     Active Substance: IRBESARTAN
     Route: 065

REACTIONS (9)
  - Hypoxic-ischaemic encephalopathy [Recovering/Resolving]
  - Pulmonary arterial hypertension [Unknown]
  - Respiratory failure [Unknown]
  - Chronic obstructive pulmonary disease [Unknown]
  - Cardiac failure [Unknown]
  - Cor pulmonale [Unknown]
  - Hypertension [Unknown]
  - Diabetes mellitus [Unknown]
  - Somnolence [Recovering/Resolving]

NARRATIVE: CASE EVENT DATE: 20241022
